FAERS Safety Report 19133903 (Version 1)
Quarter: 2021Q2

REPORT INFORMATION
  Report Type: Spontaneous
  Country: FR (occurrence: FR)
  Receive Date: 20210414
  Receipt Date: 20210414
  Transmission Date: 20210717
  Serious: Yes (Hospitalization)
  Sender: FDA-Public Use
  Company Number: FR-PFIZER INC-2021369219

PATIENT
  Age: 67 Year
  Sex: Male
  Weight: 64 kg

DRUGS (9)
  1. CORTANCYL [Concomitant]
     Active Substance: PREDNISONE
  2. ATORVASTATIN CALCIUM. [Suspect]
     Active Substance: ATORVASTATIN CALCIUM
     Indication: DYSLIPIDAEMIA
     Dosage: 80 MG, 1X/DAY
     Route: 048
     Dates: start: 20210116, end: 20210216
  3. ROACTEMRA [Suspect]
     Active Substance: TOCILIZUMAB
     Indication: GIANT CELL ARTERITIS
     Dosage: 162 MG, CYCLIC
     Route: 058
     Dates: start: 20200622, end: 20210125
  4. ZOPICLONE [Concomitant]
     Active Substance: ZOPICLONE
     Dosage: IN THE EVENING
  5. PANTOPRAZOLE [Concomitant]
     Active Substance: PANTOPRAZOLE
  6. EPLERENONE. [Concomitant]
     Active Substance: EPLERENONE
  7. RAMIPRIL. [Concomitant]
     Active Substance: RAMIPRIL
     Dosage: IN THE MORNING
  8. BISOPROLOL [Concomitant]
     Active Substance: BISOPROLOL
  9. KARDEGIC [Concomitant]
     Active Substance: ASPIRIN DL-LYSINE

REACTIONS (1)
  - Neutropenia [Recovered/Resolved]

NARRATIVE: CASE EVENT DATE: 20210205
